FAERS Safety Report 21848618 (Version 3)
Quarter: 2023Q1

REPORT INFORMATION
  Report Type: Report from Study
  Country: US (occurrence: US)
  Receive Date: 20230111
  Receipt Date: 20230127
  Transmission Date: 20230418
  Serious: Yes (Hospitalization)
  Sender: FDA-Public Use
  Company Number: US-PFIZER INC-PV202300000496

PATIENT
  Age: 74 Year
  Sex: Male

DRUGS (2)
  1. TALAZOPARIB [Suspect]
     Active Substance: TALAZOPARIB
     Indication: Prostate cancer
     Dosage: 0.5 MG, DAILY
     Route: 048
     Dates: start: 20220927, end: 20221229
  2. AXITINIB [Suspect]
     Active Substance: AXITINIB
     Indication: Prostate cancer
     Dosage: 5 MG, BID
     Route: 048
     Dates: start: 20220927, end: 20221229

REACTIONS (1)
  - Viraemia [Recovered/Resolved]

NARRATIVE: CASE EVENT DATE: 20221229
